FAERS Safety Report 5647231-0 (Version None)
Quarter: 2008Q2

REPORT INFORMATION
  Report Type: 
  Country: None (occurrence: None)
  Receive Date: 20080228
  Receipt Date: 20080228
  Transmission Date: 20081010
  Serious: Yes (Hospitalization)
  Sender: FDA-Public Use
  Company Number: None

PATIENT
  Sex: Female
  Weight: 140.6151 kg

DRUGS (1)
  1. RISPERIDONE [Suspect]
     Indication: NERVOUSNESS
     Dates: start: 20080127, end: 20080128

REACTIONS (1)
  - RASH [None]
